FAERS Safety Report 6819569-2 (Version None)
Quarter: 2010Q3

REPORT INFORMATION
  Report Type: 
  Country: None (occurrence: None)
  Receive Date: 20100701
  Receipt Date: 20090515
  Transmission Date: 20110219
  Serious: No
  Sender: FDA-Public Use
  Company Number: US-TEVA-195147USA

PATIENT
  Sex: Female
  Weight: 63.56 kg

DRUGS (5)
  1. AZILECT [Suspect]
     Indication: PARKINSON'S DISEASE
     Dosage: SEVERAL MONTHS; INCREASED DOSE FROM 0.5 MG DAILY TO 0.5 MG BID
     Route: 048
  2. SINEMET [Concomitant]
  3. MIRAPEX [Concomitant]
  4. COGENTIN [Concomitant]
  5. ATIVAN [Concomitant]

REACTIONS (1)
  - GAIT DISTURBANCE [None]
